FAERS Safety Report 10023863 (Version 3)
Quarter: 2014Q2

REPORT INFORMATION
  Report Type: Spontaneous
  Country: ES (occurrence: ES)
  Receive Date: 20140320
  Receipt Date: 20140408
  Transmission Date: 20141212
  Serious: Yes (Hospitalization)
  Sender: FDA-Public Use
  Company Number: ES-SA-2014SA029372

PATIENT
  Age: 66 Year
  Sex: Female

DRUGS (4)
  1. ELOXATIN [Suspect]
     Indication: COLON CANCER
     Route: 040
  2. ELOXATIN [Suspect]
     Indication: COLON CANCER
     Route: 040
     Dates: start: 20140226, end: 20140226
  3. XELODA [Concomitant]
     Indication: COLON CANCER
  4. XELODA [Concomitant]
     Indication: COLON CANCER
     Dates: start: 20140226, end: 20140226

REACTIONS (8)
  - Encephalopathy [Recovered/Resolved]
  - Convulsion [Recovered/Resolved]
  - Dizziness [Recovered/Resolved]
  - Disorientation [Recovered/Resolved]
  - Humerus fracture [Recovered/Resolved]
  - Muscular weakness [Recovered/Resolved]
  - Fall [Recovered/Resolved]
  - Headache [Not Recovered/Not Resolved]
